FAERS Safety Report 5061710-9 (Version None)
Quarter: 2006Q3

REPORT INFORMATION
  Report Type: 
  Country: None (occurrence: None)
  Receive Date: 20060720
  Receipt Date: 20060712
  Transmission Date: 20061208
  Serious: Yes (Hospitalization)
  Sender: FDA-Public Use
  Company Number: FRWYE120312JUL06

PATIENT
  Age: 64 Year
  Sex: Female

DRUGS (5)
  1. TAZOCILLINE (PIPERACILLIN/TAZOBACTAM, INJECTION) [Suspect]
     Indication: BACTERIAL INFECTION
     Dosage: 4 G 2X PER 1 DAY INTRAVENOUS
     Route: 042
     Dates: start: 20060524, end: 20060610
  2. CYTARABINE [Suspect]
     Indication: ACUTE MYELOID LEUKAEMIA
     Dosage: 140 MG 1X PER 1 DAY INTRAVENOUS
     Route: 042
     Dates: start: 20060601, end: 20060607
  3. BELUSTINE (LOMUSTINE, , 0) [Suspect]
     Indication: ACUTE MYELOID LEUKAEMIA
     Dosage: INTRAVENOUS
     Route: 042
     Dates: start: 20060601, end: 20060601
  4. CANCIDAS (CASPOFUNGIN ACETATE, , 0) [Suspect]
     Indication: FUNGAL INFECTION
     Dosage: INTRAVENOUS
     Route: 042
     Dates: start: 20060528, end: 20060612
  5. IDARUBICIN (IDARUBICIN, , 0) [Suspect]
     Indication: ACUTE MYELOID LEUKAEMIA
     Dosage: INTRAVENOUS
     Route: 042
     Dates: start: 20060601, end: 20060605

REACTIONS (5)
  - DRUG INEFFECTIVE [None]
  - ERYTHEMA [None]
  - LYMPHOPENIA [None]
  - NEUTROPENIA [None]
  - PRURITUS [None]
